FAERS Safety Report 17524427 (Version 1)
Quarter: 2020Q1

REPORT INFORMATION
  Report Type: Spontaneous
  Country: US (occurrence: US)
  Receive Date: 20200310
  Receipt Date: 20200310
  Transmission Date: 20200409
  Serious: No
  Sender: FDA-Public Use
  Company Number: None

PATIENT
  Age: 70 Year
  Sex: Female
  Weight: 68.04 kg

DRUGS (1)
  1. NINLARO [Suspect]
     Active Substance: IXAZOMIB CITRATE
     Dosage: ?          OTHER FREQUENCY:DAYS 1,8,15 OF 28;?
     Route: 048
     Dates: start: 20200204

REACTIONS (1)
  - Disease progression [None]
